FAERS Safety Report 7409026-7 (Version None)
Quarter: 2011Q2

REPORT INFORMATION
  Report Type: 
  Country: None (occurrence: None)
  Receive Date: 20110412
  Receipt Date: 20110331
  Transmission Date: 20111010
  Serious: Yes (Other)
  Sender: FDA-Public Use
  Company Number: PHHY2011PK26565

PATIENT
  Age: 55 Year
  Sex: Female

DRUGS (3)
  1. PREDNISOLONE [Concomitant]
     Indication: LIVER TRANSPLANT REJECTION
     Dosage: 40 MG/DAY
  2. MYCOPHENOLATE MOFETIL [Concomitant]
     Indication: LIVER TRANSPLANT
  3. TACROLIMUS [Suspect]
     Indication: LIVER TRANSPLANT
     Dosage: UNK

REACTIONS (6)
  - METABOLIC ACIDOSIS [None]
  - POLYURIA [None]
  - DEHYDRATION [None]
  - KETONURIA [None]
  - DIABETIC KETOACIDOSIS [None]
  - DIZZINESS [None]
